FAERS Safety Report 5976144-X (Version None)
Quarter: 2008Q4

REPORT INFORMATION
  Report Type: 
  Country: None (occurrence: None)
  Receive Date: 20081202
  Receipt Date: 20081126
  Transmission Date: 20090506
  Serious: Yes (Death)
  Sender: FDA-Public Use
  Company Number: US-SANOFI-SYNTHELABO-F01200801789

PATIENT
  Sex: Male
  Weight: 95.5 kg

DRUGS (9)
  1. COMPAZINE [Suspect]
     Indication: PROPHYLAXIS OF NAUSEA AND VOMITING
     Dosage: PRN
     Route: 048
     Dates: start: 20081110
  2. KYTRIL [Suspect]
     Indication: PROPHYLAXIS OF NAUSEA AND VOMITING
     Dosage: 1 MG
     Route: 042
     Dates: start: 20081110, end: 20081110
  3. BENADRYL [Suspect]
     Indication: PROPHYLAXIS OF NAUSEA AND VOMITING
     Dosage: 25 MG
     Route: 042
     Dates: start: 20081110, end: 20081110
  4. DEXAMETHASONE [Suspect]
     Indication: PROPHYLAXIS OF NAUSEA AND VOMITING
     Dosage: 10 MG
     Route: 042
     Dates: start: 20081110, end: 20081110
  5. NEXIUM [Suspect]
     Indication: GASTROOESOPHAGEAL REFLUX DISEASE
     Route: 048
  6. EPIRUBICIN [Suspect]
     Dosage: 110 MG
     Route: 042
     Dates: start: 20081110, end: 20081110
  7. FLUOROURACIL [Suspect]
     Dosage: 3080 MG CONTINUOUS FOR 7 DAYS
     Route: 041
     Dates: start: 20081110, end: 20081117
  8. FLUOROURACIL [Suspect]
     Dosage: 3080 MG CONTINUOUS FOR 7 DAYS
     Route: 041
     Dates: start: 20081117
  9. OXALIPLATIN [Suspect]
     Indication: OESOPHAGEAL CARCINOMA
     Dosage: 290 MG
     Route: 041
     Dates: start: 20081110, end: 20081110

REACTIONS (1)
  - CARDIAC ARREST [None]
